FAERS Safety Report 13496819 (Version 1)
Quarter: 2017Q2

REPORT INFORMATION
  Report Type: Spontaneous
  Country: US (occurrence: US)
  Receive Date: 20170428
  Receipt Date: 20170428
  Transmission Date: 20170830
  Serious: No
  Sender: FDA-Public Use
  Company Number: US-BIOGEN-2017BI00391781

PATIENT
  Sex: Male

DRUGS (1)
  1. AVONEX [Suspect]
     Active Substance: INTERFERON BETA-1A
     Indication: MULTIPLE SCLEROSIS
     Route: 065
     Dates: start: 20130206

REACTIONS (5)
  - Hypoacusis [Unknown]
  - Paraesthesia [Unknown]
  - Hypoaesthesia [Unknown]
  - General symptom [Unknown]
  - Musculoskeletal disorder [Unknown]
